FAERS Safety Report 4897798-5 (Version None)
Quarter: 2006Q1

REPORT INFORMATION
  Report Type: 
  Country: None (occurrence: None)
  Receive Date: 20060130
  Receipt Date: 20060130
  Transmission Date: 20060701
  Serious: Yes (Other)
  Sender: FDA-Public Use
  Company Number: None

PATIENT
  Age: 41 Year
  Sex: Female
  Weight: 69 kg

DRUGS (3)
  1. CANCIDAS [Suspect]
     Indication: FUNGAL INFECTION
     Dosage: 50 MG DAILY IV -042
     Route: 042
     Dates: start: 20060110, end: 20060120
  2. CANCIDAS [Suspect]
     Indication: FUNGAL INFECTION
     Dosage: 50 MG DAILY IV -042
     Route: 042
     Dates: start: 20060122, end: 20060124
  3. ACYCLOVIR [Concomitant]

REACTIONS (1)
  - RASH [None]
